FAERS Safety Report 9613503 (Version 1)
Quarter: 2013Q4

REPORT INFORMATION
  Report Type: Spontaneous
  Country: GB (occurrence: None)
  Receive Date: 20131008
  Receipt Date: 20131008
  Transmission Date: 20140711
  Serious: Yes (Other)
  Sender: FDA-Public Use
  Company Number: AUR-APL-2013-08037

PATIENT
  Age: 64 Year
  Sex: Male
  Weight: 82.55 kg

DRUGS (4)
  1. AMLODIPINE [Suspect]
     Indication: HYPERTENSION
     Route: 048
     Dates: start: 20130528, end: 20130808
  2. GLICLAZID (GLICLAZIDE) [Concomitant]
  3. INSULIN GLARGINE (INSULIN GLARGINE) [Concomitant]
  4. METFORM (METFORM) [Concomitant]

REACTIONS (7)
  - Local swelling [None]
  - Blister [None]
  - Joint swelling [None]
  - Visual impairment [None]
  - Fluid imbalance [None]
  - Rash [None]
  - Periorbital oedema [None]
